FAERS Safety Report 4392556-2 (Version None)
Quarter: 2004Q3

REPORT INFORMATION
  Report Type: 
  Country: None (occurrence: None)
  Receive Date: 20040702
  Receipt Date: 20040226
  Transmission Date: 20050211
  Serious: Yes (Other)
  Sender: FDA-Public Use
  Company Number: 2004UW03500

PATIENT
  Age: 70 Year
  Sex: Female
  Weight: 102.5129 kg

DRUGS (6)
  1. CRESTOR [Suspect]
     Indication: BLOOD CHOLESTEROL INCREASED
     Dosage: 10 MG PO
     Route: 048
  2. SYNTHROID [Concomitant]
  3. ZAROXOLYN [Concomitant]
  4. MONOPRIL [Concomitant]
  5. CARDIZEM [Concomitant]
  6. PREVACID [Concomitant]

REACTIONS (2)
  - DYSURIA [None]
  - FATIGUE [None]
